FAERS Safety Report 5866176-4 (Version None)
Quarter: 2008Q3

REPORT INFORMATION
  Report Type: 
  Country: None (occurrence: None)
  Receive Date: 20080829
  Receipt Date: 20080826
  Transmission Date: 20090109
  Serious: Yes (Other)
  Sender: FDA-Public Use
  Company Number: US-MERCK-0808USA05158

PATIENT
  Age: 84 Year
  Sex: Male

DRUGS (4)
  1. JANUMET [Concomitant]
     Indication: DIABETES MELLITUS
     Route: 048
     Dates: start: 20080101
  2. COSOPT [Suspect]
     Route: 047
     Dates: start: 19980101
  3. OMEPRAZOLE [Concomitant]
     Route: 065
  4. [THERAPY UNSPECIFIED] [Concomitant]
     Route: 065

REACTIONS (2)
  - DYSPHONIA [None]
  - GLAUCOMA [None]
